FAERS Safety Report 18933608 (Version 9)
Quarter: 2025Q1

REPORT INFORMATION
  Report Type: Spontaneous
  Country: CA (occurrence: CA)
  Receive Date: 20210224
  Receipt Date: 20250331
  Transmission Date: 20250409
  Serious: Yes (Hospitalization)
  Sender: Atnahs Healthcare
  Company Number: CA-ROCHE-2772437

PATIENT
  Age: 49 Year
  Sex: Female

DRUGS (35)
  1. DIAZEPAM [Interacting]
     Active Substance: DIAZEPAM
     Indication: Preoperative care
  2. CLONAZEPAM [Interacting]
     Active Substance: CLONAZEPAM
     Indication: Depression
     Route: 048
  3. CLONAZEPAM [Interacting]
     Active Substance: CLONAZEPAM
     Indication: Anxiety
  4. CLONAZEPAM [Interacting]
     Active Substance: CLONAZEPAM
  5. CLONAZEPAM [Interacting]
     Active Substance: CLONAZEPAM
  6. CLONAZEPAM [Interacting]
     Active Substance: CLONAZEPAM
  7. CLONAZEPAM [Interacting]
     Active Substance: CLONAZEPAM
  8. CLONAZEPAM [Interacting]
     Active Substance: CLONAZEPAM
  9. CLONAZEPAM [Interacting]
     Active Substance: CLONAZEPAM
  10. CLONAZEPAM [Interacting]
     Active Substance: CLONAZEPAM
  11. CLONAZEPAM [Interacting]
     Active Substance: CLONAZEPAM
  12. CLONAZEPAM [Interacting]
     Active Substance: CLONAZEPAM
  13. CLONAZEPAM [Interacting]
     Active Substance: CLONAZEPAM
  14. CLONAZEPAM [Interacting]
     Active Substance: CLONAZEPAM
  15. CLONAZEPAM [Interacting]
     Active Substance: CLONAZEPAM
  16. CLONAZEPAM [Interacting]
     Active Substance: CLONAZEPAM
  17. CLONAZEPAM [Interacting]
     Active Substance: CLONAZEPAM
  18. CLONAZEPAM [Interacting]
     Active Substance: CLONAZEPAM
  19. CLONAZEPAM [Interacting]
     Active Substance: CLONAZEPAM
  20. CLONAZEPAM [Interacting]
     Active Substance: CLONAZEPAM
  21. CLONAZEPAM [Interacting]
     Active Substance: CLONAZEPAM
  22. MIDAZOLAM HYDROCHLORIDE [Interacting]
     Active Substance: MIDAZOLAM HYDROCHLORIDE
     Indication: Anaesthesia
     Route: 065
  23. FENTANYL [Interacting]
     Active Substance: FENTANYL
     Indication: Anaesthesia
     Route: 042
  24. FLUVOXAMINE [Interacting]
     Active Substance: FLUVOXAMINE
     Indication: Product used for unknown indication
     Route: 065
  25. MEPERIDINE [Interacting]
     Active Substance: MEPERIDINE
     Indication: Product used for unknown indication
     Route: 065
  26. METHYLENE BLUE [Interacting]
     Active Substance: METHYLENE BLUE
     Indication: Hypotension
     Route: 065
  27. NOREPINEPHRINE [Interacting]
     Active Substance: NOREPINEPHRINE
     Indication: Hypotension
     Route: 065
  28. PAROXETINE HYDROCHLORIDE [Interacting]
     Active Substance: PAROXETINE HYDROCHLORIDE
     Indication: Depression
     Route: 065
  29. PAROXETINE HYDROCHLORIDE [Interacting]
     Active Substance: PAROXETINE HYDROCHLORIDE
     Indication: Anxiety
  30. PROPOFOL [Interacting]
     Active Substance: PROPOFOL
     Indication: Induction of anaesthesia
     Route: 065
  31. QUETIAPINE FUMARATE [Interacting]
     Active Substance: QUETIAPINE FUMARATE
     Indication: Depression
     Route: 065
  32. QUETIAPINE FUMARATE [Interacting]
     Active Substance: QUETIAPINE FUMARATE
     Indication: Anxiety
     Route: 065
  33. QUETIAPINE FUMARATE [Interacting]
     Active Substance: QUETIAPINE FUMARATE
  34. ROCURONIUM [Interacting]
     Active Substance: ROCURONIUM BROMIDE
     Indication: Hypotonia
     Route: 065
  35. SEVOFLURANE [Interacting]
     Active Substance: SEVOFLURANE
     Indication: Maintenance of anaesthesia
     Route: 055

REACTIONS (12)
  - Alanine aminotransferase increased [Recovered/Resolved]
  - Amylase increased [Recovered/Resolved]
  - Blood creatine phosphokinase increased [Recovered/Resolved]
  - Blood lactate dehydrogenase increased [Recovered/Resolved]
  - Blood potassium increased [Recovered/Resolved]
  - Drug interaction [Recovered/Resolved]
  - Hypotension [Recovered/Resolved]
  - Myoglobin urine present [Recovered/Resolved]
  - Serotonin syndrome [Recovered/Resolved]
  - Toxic encephalopathy [Recovered/Resolved]
  - Troponin increased [Recovered/Resolved]
  - Drug level below therapeutic [Recovered/Resolved]
